FAERS Safety Report 5821249-7 (Version None)
Quarter: 2008Q3

REPORT INFORMATION
  Report Type: 
  Country: None (occurrence: None)
  Receive Date: 20080722
  Receipt Date: 20080722
  Transmission Date: 20090109
  Serious: Yes (Hospitalization)
  Sender: FDA-Public Use
  Company Number: None

PATIENT
  Sex: Male
  Weight: 111.1313 kg

DRUGS (8)
  1. SINGULAIR [Suspect]
     Indication: RHINITIS ALLERGIC
     Dosage: 1 TABLET 1 DAILY PO
     Route: 048
     Dates: start: 20070818, end: 20080321
  2. HYDROCODONE 10 UNKNOWN [Suspect]
     Indication: BACK PAIN
     Dosage: 1 TO 2 TABLETS 2-3 TIMES AS NEEDED PO
     Route: 048
     Dates: start: 20021117, end: 20080321
  3. BENICAR [Concomitant]
  4. NASACORT CQ [Concomitant]
  5. PREVACID [Concomitant]
  6. LEXAPRO [Concomitant]
  7. CRESTOR [Concomitant]
  8. ASTELIN [Concomitant]

REACTIONS (2)
  - MULTIPLE DRUG OVERDOSE INTENTIONAL [None]
  - SUICIDE ATTEMPT [None]
